FAERS Safety Report 21413679 (Version 1)
Quarter: 2022Q4

REPORT INFORMATION
  Report Type: Report from Study
  Country: US (occurrence: US)
  Receive Date: 20221006
  Receipt Date: 20221006
  Transmission Date: 20230113
  Serious: Yes (Other)
  Sender: FDA-Public Use
  Company Number: US-JNJFOC-20220962557

PATIENT
  Age: 23 Year
  Sex: Male
  Weight: 61.290 kg

DRUGS (2)
  1. INFLIXIMAB [Suspect]
     Active Substance: INFLIXIMAB
     Indication: Inflammatory bowel disease
     Dosage: DISCONTINUED ON UNKNOWN DATE DUE TO UNKNOWN REASON (DATE OF LAST ADMINISTRATION RECORDED WAS IN FEB-
     Route: 041
     Dates: start: 20130424
  2. INFLECTRA [Concomitant]
     Active Substance: INFLIXIMAB-DYYB
     Dates: start: 20211228

REACTIONS (1)
  - Pneumonia [Not Recovered/Not Resolved]

NARRATIVE: CASE EVENT DATE: 20220528
